FAERS Safety Report 5826538-8 (Version None)
Quarter: 2008Q3

REPORT INFORMATION
  Report Type: 
  Country: None (occurrence: None)
  Receive Date: 20080729
  Receipt Date: 20080718
  Transmission Date: 20090109
  Serious: Yes (Hospitalization)
  Sender: FDA-Public Use
  Company Number: US-ELI_LILLY_AND_COMPANY-US200806004485

PATIENT
  Sex: Female

DRUGS (6)
  1. BYETTA [Suspect]
     Dosage: 5 UG, 2/D
     Route: 058
     Dates: start: 20060201
  2. BYETTA [Suspect]
     Dosage: 10 UG, 2/D
     Route: 058
     Dates: start: 20060101, end: 20070101
  3. HUMULIN N [Concomitant]
     Dosage: UNK, UNK
     Dates: start: 20050101
  4. HUMALOG [Concomitant]
  5. GLUCOPHAGE [Concomitant]
     Dosage: 1000 MG, 2/D
  6. AMBIEN [Concomitant]
     Dosage: UNK, AS NEEDED

REACTIONS (3)
  - BLOOD GLUCOSE INCREASED [None]
  - DRUG EXPOSURE DURING PREGNANCY [None]
  - PRE-ECLAMPSIA [None]
